FAERS Safety Report 16646021 (Version 1)
Quarter: 2019Q3

REPORT INFORMATION
  Report Type: Spontaneous
  Country: FR (occurrence: FR)
  Receive Date: 20190730
  Receipt Date: 20190730
  Transmission Date: 20191004
  Serious: Yes (Other)
  Sender: FDA-Public Use
  Company Number: FR-ABBVIE-19K-056-2869278-00

PATIENT
  Age: 65 Year
  Sex: Female

DRUGS (1)
  1. MAVIRET [Suspect]
     Active Substance: GLECAPREVIR\PIBRENTASVIR
     Indication: PRODUCT USED FOR UNKNOWN INDICATION
     Route: 048
     Dates: end: 201808

REACTIONS (4)
  - Bone pain [Unknown]
  - Arthralgia [Unknown]
  - Osteonecrosis [Unknown]
  - Arthralgia [Unknown]

NARRATIVE: CASE EVENT DATE: 201810
